FAERS Safety Report 12859747 (Version 2)
Quarter: 2017Q1

REPORT INFORMATION
  Report Type: Report from Study
  Country: None (occurrence: US)
  Receive Date: 20161018
  Receipt Date: 20170202
  Transmission Date: 20170428
  Serious: No
  Sender: FDA-Public Use
  Company Number: US-ABBVIE-16P-163-1752187-00

PATIENT
  Sex: Male

DRUGS (1)
  1. ANDROGEL [Suspect]
     Active Substance: TESTOSTERONE
     Indication: BLOOD TESTOSTERONE DECREASED
     Route: 061
     Dates: start: 201602

REACTIONS (4)
  - Blood testosterone decreased [Not Recovered/Not Resolved]
  - Thyroid disorder [Unknown]
  - Blood cholesterol abnormal [Unknown]
  - Gout [Unknown]
